FAERS Safety Report 4335486-4 (Version None)
Quarter: 2004Q2

REPORT INFORMATION
  Report Type: 
  Country: None (occurrence: None)
  Receive Date: 20040406
  Receipt Date: 20040324
  Transmission Date: 20050107
  Serious: Yes (Life-Threatening)
  Sender: FDA-Public Use
  Company Number: 2000-BP-02113

PATIENT
  Age: 28 Year
  Sex: Male
  Weight: 69.4 kg

DRUGS (4)
  1. VIRAMUNE [Suspect]
     Indication: HIV INFECTION
     Dosage: 400 MG (200 MG, 1 TABLET BID), PO
     Route: 048
     Dates: start: 20000613
  2. D4T (STAVUDINE) [Suspect]
     Indication: HIV INFECTION
     Dosage: 80 MG (NR), PO
     Route: 048
     Dates: start: 20000613
  3. 3TC (LAMIVUDINE) [Suspect]
     Indication: HIV INFECTION
     Dosage: 300 MG (NR), PO
     Route: 048
     Dates: start: 20000613
  4. ABACAVIR [Suspect]
     Indication: HIV INFECTION
     Dosage: 600 MG (NR), PO
     Route: 048
     Dates: start: 20000613

REACTIONS (1)
  - BLOOD CREATINE PHOSPHOKINASE INCREASED [None]
